FAERS Safety Report 16648594 (Version 2)
Quarter: 2019Q3

REPORT INFORMATION
  Report Type: Spontaneous
  Country: AU (occurrence: AU)
  Receive Date: 20190730
  Receipt Date: 20190827
  Transmission Date: 20191004
  Serious: Yes (Other)
  Sender: FDA-Public Use
  Company Number: AU-GLAXOSMITHKLINE-AU2019APC133040

PATIENT

DRUGS (1)
  1. ASMOL (SALBUTAMOL SULFATE) [Suspect]
     Active Substance: ALBUTEROL SULFATE
     Indication: PRODUCT USED FOR UNKNOWN INDICATION
     Dosage: UNK(100 UG)

REACTIONS (3)
  - Product dose omission [Unknown]
  - Product complaint [Unknown]
  - Malaise [Unknown]
